FAERS Safety Report 5318330-8 (Version None)
Quarter: 2007Q2

REPORT INFORMATION
  Report Type: 
  Country: None (occurrence: None)
  Receive Date: 20070507
  Receipt Date: 20070425
  Transmission Date: 20071010
  Serious: Yes (Hospitalization, Other)
  Sender: FDA-Public Use
  Company Number: JP-PFIZER INC-2007035195

PATIENT
  Age: 48 Year
  Sex: Female

DRUGS (4)
  1. ATARAX [Suspect]
     Indication: BACK PAIN
     Route: 030
     Dates: start: 19920324, end: 20060926
  2. ATARAX [Suspect]
     Indication: ABDOMINAL PAIN
  3. PENTAZOCINE LACTATE [Suspect]
     Indication: BACK PAIN
     Route: 030
     Dates: start: 19920324, end: 20060926
  4. PENTAZOCINE LACTATE [Suspect]
     Indication: ABDOMINAL PAIN

REACTIONS (4)
  - CALCIFICATION OF MUSCLE [None]
  - INJECTION SITE ABSCESS [None]
  - INJECTION SITE ULCER [None]
  - MUSCLE CONTRACTURE [None]
